FAERS Safety Report 10579986 (Version 1)
Quarter: 2014Q4

REPORT INFORMATION
  Report Type: Spontaneous
  Country: US (occurrence: US)
  Receive Date: 20141112
  Receipt Date: 20141112
  Transmission Date: 20150529
  Serious: Yes (Other)
  Sender: FDA-Public Use
  Company Number: US-EISAI MEDICAL RESEARCH-EC-2014-001500

PATIENT
  Sex: Male

DRUGS (5)
  1. ZONEGRAN [Suspect]
     Active Substance: ZONISAMIDE
     Indication: EPILEPSY
     Dosage: HIGH DOSE
  2. LAMICTAL [Interacting]
     Active Substance: LAMOTRIGINE
     Indication: EPILEPSY
     Dosage: HIGH DOSE
  3. KLONOPIN [Interacting]
     Active Substance: CLONAZEPAM
     Dosage: DOWNWARD TITRATION
  4. DIET [Interacting]
     Active Substance: UNSPECIFIED INGREDIENT
     Indication: EPILEPSY
     Dosage: UNKNOWN
  5. KLONOPIN [Interacting]
     Active Substance: CLONAZEPAM
     Indication: EPILEPSY
     Dosage: HIGH DOSE

REACTIONS (3)
  - Generalised tonic-clonic seizure [Unknown]
  - Food interaction [Unknown]
  - Anticonvulsant drug level increased [Unknown]
